FAERS Safety Report 7149278-4 (Version None)
Quarter: 2010Q4

REPORT INFORMATION
  Report Type: 
  Country: None (occurrence: None)
  Receive Date: 20101209
  Receipt Date: 20101130
  Transmission Date: 20110411
  Serious: Yes (Other)
  Sender: FDA-Public Use
  Company Number: SE-TEVA-241534ISR

PATIENT
  Sex: Female

DRUGS (11)
  1. METHOTREXATE [Suspect]
     Indication: RHEUMATOID ARTHRITIS
     Route: 048
  2. INFLIXIMAB [Suspect]
     Indication: RHEUMATOID ARTHRITIS
     Dates: start: 20050901, end: 20100301
  3. LEVOTHYROXINE SODIUM [Concomitant]
  4. FOLIC ACID (FOLACIN) [Concomitant]
  5. PARACETAMOL [Concomitant]
  6. IBUPROFEN [Concomitant]
  7. ACETYLSALICYLIC ACID [Concomitant]
  8. CARBOMER [Concomitant]
     Dosage: UNIT: 2 MG/G
  9. OMEPRAZOLE [Concomitant]
  10. ENALAPRIL [Concomitant]
  11. CALCICHEW D3 (CALCIUM CARBONAT W/VITAMIN D3) [Concomitant]
     Dosage: UNIT: 500MG/400IE

REACTIONS (1)
  - MYELITIS [None]
